FAERS Safety Report 6787399-6 (Version None)
Quarter: 2010Q2

REPORT INFORMATION
  Report Type: 
  Country: None (occurrence: None)
  Receive Date: 20100623
  Receipt Date: 20070331
  Transmission Date: 20101027
  Serious: No
  Sender: FDA-Public Use
  Company Number: US-PFIZER INC-2007026467

PATIENT
  Sex: Female
  Weight: 108.86 kg

DRUGS (11)
  1. DEPO-PROVERA SUSPENSION/INJ [Suspect]
     Indication: CONTRACEPTION
     Dosage: 1ST INJECTION
     Dates: start: 20061228, end: 20061228
  2. DEPO-PROVERA SUSPENSION/INJ [Suspect]
     Dosage: 2ND INJECTION
     Dates: start: 20070101, end: 20070101
  3. HYZAAR [Concomitant]
     Route: 048
  4. PRINIVIL [Concomitant]
     Route: 048
  5. NORVASC [Concomitant]
     Route: 048
  6. KLOR-CON [Concomitant]
     Route: 048
  7. SIMVASTATIN [Concomitant]
     Route: 048
  8. KEPPRA [Concomitant]
     Route: 048
  9. GLUCOPHAGE [Concomitant]
     Route: 048
  10. ACTOS [Concomitant]
     Route: 048
  11. NIFEREX [Concomitant]
     Route: 048

REACTIONS (3)
  - CONTUSION [None]
  - MENORRHAGIA [None]
  - TEMPERATURE INTOLERANCE [None]
